FAERS Safety Report 8422168-2 (Version None)
Quarter: 2012Q2

REPORT INFORMATION
  Report Type: 
  Country: None (occurrence: None)
  Receive Date: 20120608
  Receipt Date: 20120607
  Transmission Date: 20120825
  Serious: Yes (Death, Other)
  Sender: FDA-Public Use
  Company Number: PHHY2011PA86556

PATIENT
  Age: 71 Year
  Sex: Male

DRUGS (3)
  1. PLAVIX [Concomitant]
     Dosage: 1 DF, PER DAY
  2. INSULIN [Concomitant]
     Dosage: UNK UKN, BID
  3. DIOVAN [Suspect]
     Indication: HYPERTENSION
     Dosage: 1 DF (160 MG), PER DAY
     Route: 048

REACTIONS (2)
  - CEREBROVASCULAR ACCIDENT [None]
  - MYOCARDIAL INFARCTION [None]
